FAERS Safety Report 26008571 (Version 2)
Quarter: 2025Q4

REPORT INFORMATION
  Report Type: Spontaneous
  Country: US (occurrence: US)
  Receive Date: 20251106
  Receipt Date: 20251212
  Transmission Date: 20260117
  Serious: Yes (Other)
  Sender: SANDOZ
  Company Number: US-SANDOZ-SDZ2025US079909

PATIENT
  Sex: Female

DRUGS (4)
  1. CYCLOPENTOLATE [Suspect]
     Active Substance: CYCLOPENTOLATE
     Dosage: EYE DROPS
     Route: 047
  2. CYCLOPENTOLATE [Suspect]
     Active Substance: CYCLOPENTOLATE
     Indication: Optic neuritis
     Dosage: EYE DROPS
     Route: 047
  3. PREDNISOLONE [Suspect]
     Active Substance: PREDNISOLONE
     Dosage: EYE DROPS
     Route: 047
  4. PREDNISOLONE [Suspect]
     Active Substance: PREDNISOLONE
     Indication: Optic neuritis
     Dosage: EYE DROPS
     Route: 047

REACTIONS (2)
  - Optic neuritis [Unknown]
  - Condition aggravated [Unknown]
